FAERS Safety Report 15717353 (Version 1)
Quarter: 2018Q4

REPORT INFORMATION
  Report Type: Spontaneous
  Country: GB (occurrence: GB)
  Receive Date: 20181213
  Receipt Date: 20181213
  Transmission Date: 20190205
  Serious: No
  Sender: FDA-Public Use
  Company Number: GB-BIO PRODUCTS LABORATORY LTD-2060122

PATIENT

DRUGS (2)
  1. GENERIC IVIG [Suspect]
     Active Substance: HUMAN IMMUNOGLOBULIN G
     Route: 042
  2. PHOTOTHERAPY [Concomitant]

REACTIONS (1)
  - Off label use [Recovered/Resolved]
